FAERS Safety Report 5615145-8 (Version None)
Quarter: 2008Q1

REPORT INFORMATION
  Report Type: 
  Country: None (occurrence: None)
  Receive Date: 20080206
  Receipt Date: 20070807
  Transmission Date: 20080703
  Serious: No
  Sender: FDA-Public Use
  Company Number: A0668679A

PATIENT
  Age: 70 Year
  Sex: Female

DRUGS (5)
  1. ARIXTRA [Suspect]
     Dosage: 7.5MG PER DAY
     Route: 058
     Dates: start: 20070501
  2. DECADRON [Concomitant]
  3. UNKNOWN MEDICATION [Concomitant]
  4. TYKERB [Concomitant]
  5. ATENOLOL [Concomitant]

REACTIONS (2)
  - HAEMATOMA [None]
  - PETECHIAE [None]
